FAERS Safety Report 5554004-6 (Version None)
Quarter: 2007Q4

REPORT INFORMATION
  Report Type: 
  Country: None (occurrence: None)
  Receive Date: 20071212
  Receipt Date: 20071212
  Transmission Date: 20080405
  Serious: Yes (Disabling)
  Sender: FDA-Public Use
  Company Number: None

PATIENT
  Sex: Male
  Weight: 60 kg

DRUGS (1)
  1. GADOLINIUM [Suspect]

REACTIONS (1)
  - NEPHROGENIC SYSTEMIC FIBROSIS [None]
